FAERS Safety Report 9336330 (Version 3)
Quarter: 2013Q2

REPORT INFORMATION
  Report Type: Spontaneous
  Country: JP (occurrence: JP)
  Receive Date: 20130607
  Receipt Date: 20130626
  Transmission Date: 20140414
  Serious: Yes (Death, Disabling)
  Sender: FDA-Public Use
  Company Number: JP-CELGENEUS-087-21660-13060552

PATIENT
  Age: 52 Year
  Sex: Male
  Weight: 64 kg

DRUGS (12)
  1. ABRAXANE [Suspect]
     Indication: METASTATIC GASTRIC CANCER
     Dosage: 390 MILLIGRAM
     Route: 041
     Dates: start: 20130514, end: 20130514
  2. OXYCONTIN [Concomitant]
     Indication: PAIN
     Dosage: 30 MILLIGRAM
     Route: 048
  3. CALONAL [Concomitant]
     Indication: PAIN
     Dosage: 1400 MILLIGRAM
     Route: 048
  4. OXINORM [Concomitant]
     Indication: PAIN
     Dosage: 10 MILLIGRAM
     Route: 048
  5. WARFARIN POTASSIUM [Concomitant]
     Indication: ATRIAL FIBRILLATION
     Dosage: .25 MILLIGRAM
     Route: 048
  6. WARFARIN POTASSIUM [Concomitant]
     Dosage: 1.5 MILLIGRAM
     Route: 048
  7. MERCAZOLE [Concomitant]
     Indication: HYPERTHYROIDISM
     Dosage: 5 MILLIGRAM
     Route: 048
  8. LASIX [Concomitant]
     Indication: CARDIAC FAILURE CONGESTIVE
     Dosage: 40 MILLIGRAM
     Route: 048
  9. OXYGEN [Concomitant]
     Indication: OXYGEN SATURATION DECREASED
     Dosage: 4320 LITERS
     Route: 045
     Dates: start: 20130527
  10. COVERSYL [Concomitant]
     Indication: HYPERTENSION
     Dosage: 2 MILLIGRAM
     Route: 048
  11. ALDACTONE A [Concomitant]
     Indication: CARDIAC FAILURE CONGESTIVE
     Dosage: 25 MILLIGRAM
     Route: 048
  12. LANSOPRAZOLE [Concomitant]
     Indication: GASTRITIS
     Dosage: 15 MILLIGRAM
     Route: 048

REACTIONS (3)
  - Pneumonia bacterial [Fatal]
  - Neutrophil count decreased [Recovered/Resolved]
  - Hypoaesthesia [Recovered/Resolved]
